FAERS Safety Report 8908659 (Version 4)
Quarter: 2013Q4

REPORT INFORMATION
  Report Type: Report from Study
  Country: US (occurrence: US)
  Receive Date: 20121113
  Receipt Date: 20131118
  Transmission Date: 20140711
  Serious: Yes (Hospitalization)
  Sender: FDA-Public Use
  Company Number: US-TEVA-369711USA

PATIENT
  Age: 66 Year
  Sex: Male

DRUGS (13)
  1. FLUOROURACIL [Suspect]
     Indication: NEOPLASM
     Dosage: DAYS 1-3 AND 15-17 OF EACH 28-DAY CYCLE (2400 MG/M2)
     Route: 042
     Dates: start: 20120905
  2. FOLINIC ACID [Suspect]
     Indication: NEOPLASM
     Dosage: DAY 1 AND 15 OF A 28-DAY CYCLE (400 MG/M2)
     Route: 042
     Dates: start: 20120905
  3. ABT-S88 (VELIPARIB) (OPEN LABEL) [Suspect]
     Indication: NEOPLASM
     Dosage: 1) DAYS 15-19 IN CYCLE 1; DAYS 1-5 AND 15-19 FOR SUBSEQUENT CYCLES (28-DAY CYCLE) (10 MG,2 IN 1 D)
     Route: 048
     Dates: start: 20120919, end: 20130923
  4. ABT-S88 (VELIPARIB) (OPEN LABEL) [Suspect]
     Dosage: 1) DAYS 15-19 IN CYCLE 1; DAYS 1-5 AND 15-19 FOR SUBSEQUENT CYCLES (28-DAY CYCLE) (10 MG,2 IN 1 D)
     Route: 048
     Dates: start: 20131011, end: 20131011
  5. IRINOTECAN [Suspect]
     Indication: NEOPLASM
     Dosage: DAY 1 AND 15 OF A 28-DAY CYCLE (150 MG/M2)
     Route: 042
     Dates: start: 20120905
  6. MS CONTIN [Concomitant]
     Indication: ABDOMINAL PAIN
     Dosage: 60 MILLIGRAM DAILY; AS NEEDED
     Dates: start: 20120531
  7. MS CONTIN [Concomitant]
     Dosage: 30 MILLIGRAM DAILY;
  8. LISINOPRIL [Concomitant]
     Indication: HYPERTENSION
     Dosage: 5 MILLIGRAM DAILY;
     Dates: start: 20120627
  9. SENOKOT [Concomitant]
     Indication: CONSTIPATION
     Dosage: 1 TABLET, AS REQUIRED
     Dates: start: 2012
  10. HYDROCODONE [Concomitant]
     Indication: MUSCULOSKELETAL PAIN
     Dosage: 5 MG, AS REQUIRED
     Dates: start: 2012
  11. MEGACE [Concomitant]
     Indication: DECREASED APPETITE
     Dosage: 800 MILLIGRAM DAILY;
     Dates: start: 20120627
  12. ZOFRAN [Concomitant]
     Indication: PROPHYLAXIS OF NAUSEA AND VOMITING
     Dosage: 8 MG, AS REQUIRED
     Dates: start: 20120919
  13. FILGRASTIM [Concomitant]

REACTIONS (1)
  - Abdominal pain [Recovered/Resolved]
